FAERS Safety Report 5270948-7 (Version None)
Quarter: 2007Q1

REPORT INFORMATION
  Report Type: 
  Country: None (occurrence: None)
  Receive Date: 20070321
  Receipt Date: 20070312
  Transmission Date: 20070707
  Serious: Yes (Hospitalization)
  Sender: FDA-Public Use
  Company Number: FR-AVENTIS-200711362EU

PATIENT
  Age: 56 Year
  Sex: Male
  Weight: 84 kg

DRUGS (6)
  1. FLUDEX                             /00340101/ [Suspect]
     Indication: HYPERTENSION
     Route: 048
     Dates: end: 20070118
  2. TUSSIDANE [Suspect]
     Indication: BRONCHOPNEUMOPATHY
     Route: 048
     Dates: start: 20070115, end: 20070118
  3. ALLOPURINOL [Concomitant]
  4. NEBIVOLOL HYDROCHLORIDE [Concomitant]
  5. OLMETEC [Concomitant]
  6. AMOXICILLIN [Concomitant]
     Dates: start: 20070115, end: 20070118

REACTIONS (3)
  - HALLUCINATION [None]
  - HYPOKALAEMIA [None]
  - HYPONATRAEMIA [None]
